FAERS Safety Report 13378007 (Version 1)
Quarter: 2017Q1

REPORT INFORMATION
  Report Type: Spontaneous
  Country: SE (occurrence: SE)
  Receive Date: 20170328
  Receipt Date: 20170328
  Transmission Date: 20170429
  Serious: Yes (Hospitalization)
  Sender: FDA-Public Use
  Company Number: SE-PFIZER INC-2017074031

PATIENT
  Age: 49 Year
  Sex: Female

DRUGS (4)
  1. SALAZOPYRIN [Suspect]
     Active Substance: SULFASALAZINE
     Indication: RHEUMATOID ARTHRITIS
     Dosage: 500 MG, DAILY (1-2 TABS DAILY)
     Route: 048
     Dates: start: 2000
  2. MINIFOM [Concomitant]
     Dosage: 200 MG, UNK
     Dates: start: 1997
  3. ALVEDON [Concomitant]
     Active Substance: ACETAMINOPHEN
  4. PANODIL [Concomitant]
     Active Substance: ACETAMINOPHEN
     Dosage: UNK

REACTIONS (3)
  - Weight increased [Recovered/Resolved]
  - Diarrhoea [Recovered/Resolved]
  - Gastric disorder [Recovered/Resolved]

NARRATIVE: CASE EVENT DATE: 2000
